FAERS Safety Report 13636579 (Version 1)
Quarter: 2017Q2

REPORT INFORMATION
  Report Type: Spontaneous
  Country: GB (occurrence: GB)
  Receive Date: 20170609
  Receipt Date: 20170609
  Transmission Date: 20170830
  Serious: Yes (Other)
  Sender: FDA-Public Use
  Company Number: GB-TEVA-776785ACC

PATIENT
  Age: 49 Year
  Sex: Female

DRUGS (11)
  1. FEXOFENADINE [Suspect]
     Active Substance: FEXOFENADINE\FEXOFENADINE HYDROCHLORIDE
     Indication: SEASONAL ALLERGY
     Dosage: 360 MILLIGRAM DAILY; REDUCED TO ONCE DAILY
     Route: 048
     Dates: end: 20170502
  2. CLINITAS [Concomitant]
     Dosage: 3-4 TIMES A DAY
     Route: 050
  3. PROPRANOLOL [Concomitant]
     Active Substance: PROPRANOLOL HYDROCHLORIDE
     Indication: ANXIETY
     Dosage: 60 MILLIGRAM DAILY; 2 MORNING, 2 MID AFTERNOON AND 2 NIGHTAND REVIEW IN 2-3 WEEKS
  4. SODIUM CROMOGLYCATE [Concomitant]
     Active Substance: CROMOLYN SODIUM
     Indication: EYE DISORDER
  5. NEDOCROMIL [Concomitant]
     Active Substance: NEDOCROMIL
     Indication: EYE DISORDER
  6. VENTOLIN [Concomitant]
     Active Substance: ALBUTEROL SULFATE
     Route: 055
  7. LANSOPRAZOLE. [Concomitant]
     Active Substance: LANSOPRAZOLE
     Dosage: 30 MILLIGRAM DAILY;
  8. RINATEC [Concomitant]
     Dosage: 4 DOSAGE FORMS DAILY; TWO SPRAYS TO BE USED IN EACH NOSTRIL TWICE A DAY FOR 2 MONTHS
     Route: 045
  9. OILATUM [Concomitant]
  10. DERMOL [Concomitant]
     Active Substance: BENZALKONIUM CHLORIDE\CHLORHEXIDINE HYDROCHLORIDE\ISOPROPYL MYRISTATE\PARAFFIN
     Dosage: USE AS SOAP SUBSTITUTE
  11. PARACETAMOL [Concomitant]
     Active Substance: ACETAMINOPHEN
     Dosage: 1 OR 2 4 TIMES A DAY

REACTIONS (1)
  - Palpitations [Unknown]
